FAERS Safety Report 4284452-6 (Version None)
Quarter: 2004Q1

REPORT INFORMATION
  Report Type: 
  Country: None (occurrence: None)
  Receive Date: 20040130
  Receipt Date: 20040120
  Transmission Date: 20041129
  Serious: Yes (Death, Other)
  Sender: FDA-Public Use
  Company Number: 2004195457GB

PATIENT
  Age: 85 Year
  Sex: Male

DRUGS (2)
  1. DELTA-CORTEF [Suspect]
     Dosage: 1 MG/KG UNK, ORAL
     Route: 048
  2. AZATHIOPRINE [Suspect]
     Dosage: 100 50 MG ORAL
     Route: 048

REACTIONS (2)
  - EXTRADURAL ABSCESS [None]
  - SEPSIS [None]
